FAERS Safety Report 17611274 (Version 17)
Quarter: 2020Q2

REPORT INFORMATION
  Report Type: Spontaneous
  Country: HU (occurrence: HU)
  Receive Date: 20200401
  Receipt Date: 20200626
  Transmission Date: 20200713
  Serious: Yes (Hospitalization, Other)
  Sender: FDA-Public Use
  Company Number: HU-PFIZER INC-2020088311

PATIENT
  Age: 62 Year
  Sex: Male
  Weight: 93 kg

DRUGS (22)
  1. IRBESARTAN TEVA [Interacting]
     Active Substance: IRBESARTAN
     Indication: HYPERTENSION
     Dosage: 150 MILLIGRAM, QD IN THE EVENING
     Route: 048
     Dates: start: 2019, end: 202004
  2. EBRANTIL [Suspect]
     Active Substance: URAPIDIL
     Indication: BLOOD PRESSURE MEASUREMENT
     Dosage: UNK
     Route: 065
  3. ALFUZOSIN [Concomitant]
     Active Substance: ALFUZOSIN
     Indication: PROSTATIC DISORDER
     Dosage: 1 TABLET IN THE EVENING (1 TABLET IN THE EVENING)
     Route: 065
  4. QUAMATEL [Concomitant]
     Active Substance: FAMOTIDINE
     Indication: HYPERCHLORHYDRIA
     Dosage: 20 MG, 2X/DAY
     Route: 065
  5. QUAMATEL [Concomitant]
     Active Substance: FAMOTIDINE
  6. DIFLUCAN [Interacting]
     Active Substance: FLUCONAZOLE
     Indication: ORAL FUNGAL INFECTION
     Dosage: 50 MG, 1X/DAY
     Route: 048
     Dates: start: 20200302, end: 20200303
  7. CEFZIL [Suspect]
     Active Substance: CEFPROZIL
     Dosage: UNK
     Route: 065
  8. QUAMATEL [Concomitant]
     Active Substance: FAMOTIDINE
  9. AMLODIPINE [Concomitant]
     Active Substance: AMLODIPINE BESYLATE
     Dosage: UNK
     Route: 065
  10. AVAMYS [Concomitant]
     Active Substance: FLUTICASONE FUROATE
     Indication: HYPERSENSITIVITY
     Dosage: UNK
     Route: 065
  11. ELIQUIS [Suspect]
     Active Substance: APIXABAN
     Indication: FACTOR V LEIDEN MUTATION
  12. QUAMATEL [Concomitant]
     Active Substance: FAMOTIDINE
     Dosage: 20 MG
     Route: 065
  13. DIFLUCAN [Suspect]
     Active Substance: FLUCONAZOLE
     Indication: CANDIDA INFECTION
     Dosage: 50 MG, 1X/DAY
     Route: 048
     Dates: start: 20200228, end: 20200229
  14. LETROX [Concomitant]
     Active Substance: LEVOTHYROXINE SODIUM
     Dosage: 87.5 UG, UNK
     Route: 065
  15. ELIQUIS [Suspect]
     Active Substance: APIXABAN
     Indication: CEREBROVASCULAR ACCIDENT PROPHYLAXIS
     Dosage: 5 MILLIGRAM, BID
     Route: 065
     Dates: end: 202002
  16. ELIQUIS [Suspect]
     Active Substance: APIXABAN
     Indication: ATRIAL FIBRILLATION
     Dosage: 5 MILLIGRAM, BID
     Route: 065
     Dates: start: 2020
  17. CLEXAN [Concomitant]
     Active Substance: ENOXAPARIN SODIUM
     Indication: ATRIAL FIBRILLATION
     Dosage: 0.8 ML, 2X/DAY
     Route: 058
     Dates: start: 202002, end: 202002
  18. QUAMATEL [Concomitant]
     Active Substance: FAMOTIDINE
  19. QUAMATEL [Concomitant]
     Active Substance: FAMOTIDINE
  20. QUAMATEL [Concomitant]
     Active Substance: FAMOTIDINE
     Dosage: 20 MG, 2X/DAY
     Route: 065
  21. CEFZIL [Suspect]
     Active Substance: CEFPROZIL
     Indication: UPPER RESPIRATORY TRACT INFECTION
     Dosage: UNK
     Route: 065
  22. QUAMATEL [Concomitant]
     Active Substance: FAMOTIDINE
     Dosage: 20 MG, 2X/DAY

REACTIONS (9)
  - Blood pressure systolic increased [Recovered/Resolved]
  - Blood pressure increased [Recovered/Resolved]
  - Histamine level increased [Unknown]
  - Candida infection [Unknown]
  - Drug interaction [Recovered/Resolved]
  - Atrial fibrillation [Unknown]
  - Upper respiratory tract infection [Not Recovered/Not Resolved]
  - Blood pressure systolic increased [Recovered/Resolved]
  - Angina pectoris [Unknown]

NARRATIVE: CASE EVENT DATE: 2020
